FAERS Safety Report 5445056-2 (Version None)
Quarter: 2007Q3

REPORT INFORMATION
  Report Type: 
  Country: None (occurrence: None)
  Receive Date: 20070906
  Receipt Date: 20070828
  Transmission Date: 20080115
  Serious: Yes (Other)
  Sender: FDA-Public Use
  Company Number: US-PFIZER INC-2007072020

PATIENT
  Sex: Male
  Weight: 74.8 kg

DRUGS (35)
  1. VIAGRA [Suspect]
     Indication: ERECTILE DYSFUNCTION
     Dates: start: 20070101, end: 20070101
  2. METOPROLOL SUCCINATE [Suspect]
  3. FUROSEMIDE [Suspect]
  4. HYDROXYZINE [Concomitant]
  5. DOCUSATE [Concomitant]
  6. COMBIVENT [Concomitant]
  7. NITROGLYCERIN [Concomitant]
  8. ASPIRIN [Concomitant]
  9. ASPIRIN [Concomitant]
  10. CONSTULOSE [Concomitant]
  11. CONSTULOSE [Concomitant]
  12. DUONEB [Concomitant]
  13. DUONEB [Concomitant]
  14. FLONASE [Concomitant]
  15. FLONASE [Concomitant]
  16. ZOCOR [Concomitant]
  17. ZOCOR [Concomitant]
  18. WARFARIN SODIUM [Concomitant]
  19. WARFARIN SODIUM [Concomitant]
  20. ALL OTHER THERAPEUTIC PRODUCTS [Concomitant]
  21. ALL OTHER THERAPEUTIC PRODUCTS [Concomitant]
  22. TRANXENE [Concomitant]
  23. TRANXENE [Concomitant]
  24. SOMA [Concomitant]
  25. SOMA [Concomitant]
  26. TYLENOL W/ CODEINE NO. 4 [Concomitant]
  27. TYLENOL W/ CODEINE NO. 4 [Concomitant]
  28. CALCIUM [Concomitant]
  29. CALCIUM [Concomitant]
  30. FOSAMAX [Concomitant]
  31. FOSAMAX [Concomitant]
  32. BUPROPION HCL [Concomitant]
  33. RANITIDINE [Concomitant]
  34. NEXIUM [Concomitant]
  35. TESTOSTERONE [Concomitant]

REACTIONS (3)
  - BLOOD POTASSIUM INCREASED [None]
  - DRUG INEFFECTIVE [None]
  - ERECTILE DYSFUNCTION [None]
